FAERS Safety Report 4406431-8 (Version None)
Quarter: 2004Q3

REPORT INFORMATION
  Report Type: 
  Country: None (occurrence: None)
  Receive Date: 20040723
  Receipt Date: 20030730
  Transmission Date: 20050211
  Serious: No
  Sender: FDA-Public Use
  Company Number: US-GLAXOSMITHKLINE-A0418841A

PATIENT
  Age: 56 Year
  Sex: Female

DRUGS (5)
  1. AVANDIA [Suspect]
     Dosage: 8MG PER DAY
     Route: 048
     Dates: start: 20030601
  2. DEMADEX [Concomitant]
     Indication: SWELLING
     Route: 048
  3. HUMULIN N [Concomitant]
  4. NEURONTIN [Concomitant]
     Route: 048
  5. PREMARIN [Concomitant]

REACTIONS (2)
  - ABDOMINAL DISTENSION [None]
  - OEDEMA PERIPHERAL [None]
